FAERS Safety Report 4372053-0 (Version None)
Quarter: 2004Q2

REPORT INFORMATION
  Report Type: 
  Country: None (occurrence: None)
  Receive Date: 20040602
  Receipt Date: 20040519
  Transmission Date: 20050107
  Serious: Yes (Death, Hospitalization)
  Sender: FDA-Public Use
  Company Number: 2004-BP-0338CL

PATIENT
  Sex: Male

DRUGS (1)
  1. SPIRIVA [Suspect]
     Indication: CHRONIC OBSTRUCTIVE AIRWAYS DISEASE
     Dosage: 18 MCG 918 MCG, 1 PUFF DAILY) IH
     Route: 055

REACTIONS (3)
  - ASTHENIA [None]
  - BRONCHOPNEUMONIA [None]
  - LYMPHOMA [None]
